FAERS Safety Report 6847667-6 (Version None)
Quarter: 2010Q3

REPORT INFORMATION
  Report Type: 
  Country: None (occurrence: None)
  Receive Date: 20100716
  Receipt Date: 20100705
  Transmission Date: 20110219
  Serious: Yes (Hospitalization, Other)
  Sender: FDA-Public Use
  Company Number: PHHY2010CL22092

PATIENT
  Sex: Female

DRUGS (2)
  1. LEPONEX [Suspect]
     Indication: BIPOLAR I DISORDER
     Dosage: 200 MG PER DAY
     Dates: start: 20100101, end: 20100401
  2. VALPROIC ACID [Concomitant]

REACTIONS (2)
  - RENAL FAILURE [None]
  - URINARY TRACT INFECTION [None]
